FAERS Safety Report 7121777-0 (Version None)
Quarter: 2010Q4

REPORT INFORMATION
  Report Type: 
  Country: None (occurrence: None)
  Receive Date: 20101124
  Receipt Date: 20101116
  Transmission Date: 20110411
  Serious: Yes (Other)
  Sender: FDA-Public Use
  Company Number: US-ROCHE-723025

PATIENT
  Sex: Male
  Weight: 68 kg

DRUGS (3)
  1. ACCUTANE [Suspect]
     Indication: ACNE
     Route: 048
     Dates: start: 19990801, end: 20000301
  2. ACCUTANE [Suspect]
     Route: 048
     Dates: start: 20000410, end: 20000601
  3. ACCUTANE [Suspect]
     Route: 048
     Dates: start: 20020101, end: 20020301

REACTIONS (8)
  - BLOOD ALKALINE PHOSPHATASE INCREASED [None]
  - CROHN'S DISEASE [None]
  - DEPRESSION [None]
  - GASTROINTESTINAL INJURY [None]
  - INFLAMMATORY BOWEL DISEASE [None]
  - PROCTITIS [None]
  - SUICIDAL IDEATION [None]
  - SUICIDE ATTEMPT [None]
